FAERS Safety Report 5676351-X (Version None)
Quarter: 2008Q1

REPORT INFORMATION
  Report Type: 
  Country: None (occurrence: None)
  Receive Date: 20080321
  Receipt Date: 20080311
  Transmission Date: 20080703
  Serious: Yes (Hospitalization)
  Sender: FDA-Public Use
  Company Number: PFIZER INC-2008022855

PATIENT
  Age: 58 Year
  Sex: Male

DRUGS (2)
  1. DETRUSITOL SR [Suspect]
     Indication: ILL-DEFINED DISORDER
     Dosage: DAILY DOSE:4MG
     Route: 048
  2. HARNAL [Suspect]
     Indication: BENIGN PROSTATIC HYPERPLASIA
     Dosage: DAILY DOSE:.2MG
     Route: 048

REACTIONS (1)
  - STEVENS-JOHNSON SYNDROME [None]
